FAERS Safety Report 24323553 (Version 1)
Quarter: 2024Q3

REPORT INFORMATION
  Report Type: Spontaneous
  Country: US (occurrence: None)
  Receive Date: 20240913
  Receipt Date: 20240913
  Transmission Date: 20241017
  Serious: Yes (Other)
  Sender: Public
  Company Number: None

PATIENT
  Age: 75 Year
  Sex: Male
  Weight: 62.55 kg

DRUGS (1)
  1. OZEMPIC [Suspect]
     Active Substance: SEMAGLUTIDE
     Dosage: OTHER FREQUENCY : EVERY 7 DAYS;?
     Route: 058
     Dates: start: 20240730, end: 20240816

REACTIONS (5)
  - Lethargy [None]
  - Emotional poverty [None]
  - Anhedonia [None]
  - Dissociation [None]
  - Suicidal ideation [None]

NARRATIVE: CASE EVENT DATE: 20240812
